FAERS Safety Report 5907431-9 (Version None)
Quarter: 2008Q4

REPORT INFORMATION
  Report Type: 
  Country: None (occurrence: None)
  Receive Date: 20081003
  Receipt Date: 20080926
  Transmission Date: 20090506
  Serious: Yes (Hospitalization)
  Sender: FDA-Public Use
  Company Number: A0750143A

PATIENT
  Age: 40 Year
  Sex: Male

DRUGS (7)
  1. AVANDIA [Suspect]
     Indication: DIABETES MELLITUS
     Dosage: 4MG PER DAY
     Route: 048
     Dates: start: 20060609, end: 20080104
  2. METFORMIN HCL [Concomitant]
  3. LANTUS [Concomitant]
  4. AMARYL [Concomitant]
  5. JANUVIA [Concomitant]
  6. ATENOLOL [Concomitant]
  7. LIPITOR [Concomitant]

REACTIONS (3)
  - CARDIAC DISORDER [None]
  - CORONARY ARTERY DISEASE [None]
  - MYOCARDIAL INFARCTION [None]
